FAERS Safety Report 6128048-X (Version None)
Quarter: 2009Q1

REPORT INFORMATION
  Report Type: 
  Country: None (occurrence: None)
  Receive Date: 20090319
  Receipt Date: 20090304
  Transmission Date: 20090719
  Serious: Yes (Death, Other)
  Sender: FDA-Public Use
  Company Number: 2009BI002684

PATIENT
  Age: 45 Year
  Sex: Male

DRUGS (8)
  1. ZEVALIN [Suspect]
     Indication: NON-HODGKIN'S LYMPHOMA
     Dosage: 32 MCI; 1 IX; IV
     Route: 042
     Dates: start: 20080725, end: 20080725
  2. RITUXIMAB [Concomitant]
  3. FLUDARABINE PHOSPHATE [Concomitant]
  4. MELPHALAN [Concomitant]
  5. CYCLOSPORINE [Concomitant]
  6. METHOTREXATE [Concomitant]
  7. FOLIC ACID [Concomitant]
  8. NEUPOGEN [Concomitant]

REACTIONS (4)
  - BLOOD CULTURE POSITIVE [None]
  - LEUKOPENIA [None]
  - PROTEUS INFECTION [None]
  - SEPTIC SHOCK [None]
